FAERS Safety Report 5063975-6 (Version None)
Quarter: 2006Q3

REPORT INFORMATION
  Report Type: 
  Country: None (occurrence: None)
  Receive Date: 20060703
  Receipt Date: 20051013
  Transmission Date: 20061208
  Serious: No
  Sender: FDA-Public Use
  Company Number: 2005S1010211

PATIENT
  Age: 44 Year
  Sex: Male
  Weight: 81.8 kg

DRUGS (10)
  1. CLOZAPINE [Suspect]
     Indication: SCHIZOPHRENIA, UNDIFFERENTIATED TYPE
     Dosage: SEE IMAGE
     Route: 048
     Dates: start: 20041124
  2. CLOZAPINE [Suspect]
     Indication: SCHIZOPHRENIA, UNDIFFERENTIATED TYPE
     Dosage: SEE IMAGE
     Route: 048
     Dates: start: 20041124
  3. BENZTROPINE MESYLATE [Concomitant]
  4. DOCUSATE [Concomitant]
  5. RANITIDINE [Concomitant]
  6. VALPROIC ACID [Concomitant]
  7. TOCOPHEROL CONCENTRATE CAP [Concomitant]
  8. ENALAPRIL MALEATE [Concomitant]
  9. MAGNESIUM HYDROXIDE TAB [Concomitant]
  10. CAPSAICIN [Concomitant]

REACTIONS (1)
  - GRANULOCYTOPENIA [None]
